FAERS Safety Report 10242572 (Version 1)
Quarter: 2014Q2

REPORT INFORMATION
  Report Type: Spontaneous
  Country: US (occurrence: US)
  Receive Date: 20140617
  Receipt Date: 20140617
  Transmission Date: 20141212
  Serious: No
  Sender: FDA-Public Use
  Company Number: US-ASTRAZENECA-2014SE39974

PATIENT
  Age: 76 Year
  Sex: Female
  Weight: 47.2 kg

DRUGS (1)
  1. PULMICORT FLEXHALER [Suspect]
     Indication: BRONCHITIS
     Dosage: 180 UG 2 PUFFS TWO TIMES A DAY
     Route: 055
     Dates: start: 20140528, end: 20140604

REACTIONS (6)
  - Stomatitis [Unknown]
  - Glossodynia [Unknown]
  - Salivary hypersecretion [Unknown]
  - Cough [Unknown]
  - Oral candidiasis [Unknown]
  - Intentional product misuse [Unknown]
